FAERS Safety Report 8432402-0 (Version None)
Quarter: 2012Q2

REPORT INFORMATION
  Report Type: 
  Country: None (occurrence: None)
  Receive Date: 20120607
  Receipt Date: 20120524
  Transmission Date: 20120825
  Serious: Yes (Death)
  Sender: FDA-Public Use
  Company Number: 2012CP000066

PATIENT
  Age: 4 Year
  Sex: Female

DRUGS (2)
  1. PENICILLIN G SODIUM [Suspect]
     Dosage: IV
     Route: 042
  2. ACETAMINOPHEN [Suspect]
     Indication: PYREXIA
     Dosage: 160 MG; 3/1 DAY;IV
     Route: 042

REACTIONS (4)
  - RESPIRATORY DISTRESS [None]
  - CONVULSION [None]
  - SHOCK [None]
  - CARDIO-RESPIRATORY ARREST [None]
